FAERS Safety Report 6564850-8 (Version None)
Quarter: 2010Q1

REPORT INFORMATION
  Report Type: 
  Country: None (occurrence: None)
  Receive Date: 20100201
  Receipt Date: 20100118
  Transmission Date: 20100710
  Serious: Yes (Other)
  Sender: FDA-Public Use
  Company Number: US-PFIZER INC-2009199015

PATIENT
  Sex: Female
  Weight: 89.796 kg

DRUGS (12)
  1. ZOLOFT [Suspect]
     Indication: BIPOLAR I DISORDER
     Dosage: 200 MG, 2X/DAY
  2. ZOLOFT [Suspect]
     Indication: BIPOLAR DISORDER
  3. DETROL LA [Suspect]
     Indication: BLADDER DISORDER
     Dosage: 4 MG, 1X/DAY
     Dates: start: 20040101
  4. NEURONTIN [Suspect]
     Indication: HYPOAESTHESIA
     Dosage: FREQUENCY: 3X/DAY,
  5. NEURONTIN [Suspect]
     Indication: SENSORY LOSS
  6. WELLBUTRIN [Suspect]
  7. SEROQUEL [Suspect]
  8. LORATADINE [Concomitant]
     Indication: HYPERSENSITIVITY
  9. NAPROXEN [Concomitant]
     Dosage: FREQUENCY: 3X/DAY,
     Route: 048
  10. CLONAZEPAM [Concomitant]
     Dosage: 1 MG, 1X/DAY
     Route: 048
  11. LITHIUM CARBONATE [Concomitant]
     Dosage: UNK
  12. LASIX [Concomitant]
     Dosage: UNK

REACTIONS (10)
  - BIPOLAR DISORDER [None]
  - BLOOD POTASSIUM DECREASED [None]
  - BLOOD PRESSURE INCREASED [None]
  - FEELING ABNORMAL [None]
  - GASTROINTESTINAL PAIN [None]
  - HYPERHIDROSIS [None]
  - HYPOTHYROIDISM [None]
  - INSOMNIA [None]
  - OEDEMA PERIPHERAL [None]
  - OSTEOPENIA [None]
